FAERS Safety Report 6371417-3 (Version None)
Quarter: 2009Q3

REPORT INFORMATION
  Report Type: 
  Country: None (occurrence: None)
  Receive Date: 20090923
  Receipt Date: 20070810
  Transmission Date: 20100115
  Serious: Yes (Other)
  Sender: FDA-Public Use
  Company Number: US-ASTRAZENECA-2007UW09606

PATIENT
  Age: 8936 Day
  Sex: Female

DRUGS (7)
  1. SEROQUEL [Suspect]
     Indication: SLEEP DISORDER
     Route: 048
     Dates: start: 20041201
  2. SEROQUEL [Suspect]
     Dosage: 100 MG TO 300 MG
     Route: 048
     Dates: start: 20040909
  3. WELLBUTRIN XL [Concomitant]
  4. FLUOXETINE [Concomitant]
  5. LAMICTAL [Concomitant]
  6. METOPROLOL TARTRATE [Concomitant]
  7. METFORMIN HCL [Concomitant]

REACTIONS (11)
  - ARTHRALGIA [None]
  - CARDIOMEGALY [None]
  - COUGH [None]
  - DEPRESSION [None]
  - DIARRHOEA [None]
  - GASTROINTESTINAL HAEMORRHAGE [None]
  - HEPATIC STEATOSIS [None]
  - NAUSEA [None]
  - OBESITY [None]
  - PANCREATITIS ACUTE [None]
  - VOMITING [None]
